FAERS Safety Report 6013125-4 (Version None)
Quarter: 2008Q4

REPORT INFORMATION
  Report Type: 
  Country: None (occurrence: None)
  Receive Date: 20081219
  Receipt Date: 20081211
  Transmission Date: 20090506
  Serious: Yes (Hospitalization)
  Sender: FDA-Public Use
  Company Number: US-BIOGENIDEC-2008BI001625

PATIENT
  Sex: Female

DRUGS (1)
  1. TYSABRI [Suspect]
     Indication: MULTIPLE SCLEROSIS
     Route: 042
     Dates: start: 20070807, end: 20080104

REACTIONS (8)
  - ACCIDENTAL OVERDOSE [None]
  - BACK PAIN [None]
  - BLOOD POTASSIUM DECREASED [None]
  - BLOOD PRESSURE DECREASED [None]
  - FAECAL INCONTINENCE [None]
  - INSOMNIA [None]
  - PAIN IN EXTREMITY [None]
  - URINARY INCONTINENCE [None]
